FAERS Safety Report 7624998-3 (Version None)
Quarter: 2011Q3

REPORT INFORMATION
  Report Type: 
  Country: None (occurrence: None)
  Receive Date: 20110721
  Receipt Date: 20110712
  Transmission Date: 20111222
  Serious: Yes (Hospitalization)
  Sender: FDA-Public Use
  Company Number: US-BIOGENIDEC-2011BI023956

PATIENT
  Age: 29 Year
  Sex: Female

DRUGS (4)
  1. AVONEX [Suspect]
     Indication: MULTIPLE SCLEROSIS
     Route: 030
     Dates: start: 20091007
  2. AVONEX [Suspect]
     Route: 030
     Dates: start: 19980302, end: 19990302
  3. AVONEX [Suspect]
     Route: 030
     Dates: start: 20081124
  4. AVONEX [Suspect]
     Route: 030
     Dates: start: 20070421

REACTIONS (1)
  - PULMONARY EMBOLISM [None]
